FAERS Safety Report 5449226-9 (Version None)
Quarter: 2007Q3

REPORT INFORMATION
  Report Type: 
  Country: None (occurrence: None)
  Receive Date: 20070907
  Receipt Date: 20070821
  Transmission Date: 20080115
  Serious: Yes (Life-Threatening)
  Sender: FDA-Public Use
  Company Number: DSJ-2007-06101

PATIENT
  Age: 34 Year
  Sex: Male

DRUGS (4)
  1. OLMESARTAN MEDOXOMIL [Suspect]
     Dosage: 1480 MG,PER ORAL
     Route: 048
     Dates: start: 20070818, end: 20070818
  2. ARTIST (CARVEDILOL) (TABLET) (CARVEDILOL) [Suspect]
     Dosage: 320 MG,PER ORAL
     Route: 048
     Dates: start: 20070818, end: 20070818
  3. DIOVAN [Suspect]
     Dosage: 320 MG,PER ORAL
     Route: 048
     Dates: start: 20070818, end: 20070818
  4. ADALAT CC [Suspect]

REACTIONS (4)
  - MULTIPLE DRUG OVERDOSE INTENTIONAL [None]
  - SHOCK [None]
  - SUICIDE ATTEMPT [None]
  - VOMITING [None]
